FAERS Safety Report 6191941-6 (Version None)
Quarter: 2009Q2

REPORT INFORMATION
  Report Type: 
  Country: None (occurrence: None)
  Receive Date: 20090515
  Receipt Date: 20090505
  Transmission Date: 20091009
  Serious: Yes (Hospitalization)
  Sender: FDA-Public Use
  Company Number: A0782656A

PATIENT
  Sex: Female
  Weight: 116 kg

DRUGS (7)
  1. ELTROMBOPAG [Suspect]
     Indication: THROMBOCYTOPENIA
     Dosage: 25MG PER DAY
     Route: 048
     Dates: start: 20081215, end: 20090504
  2. PEG-INTRON [Suspect]
     Dosage: 150MCG WEEKLY
     Route: 058
     Dates: start: 20081215, end: 20090504
  3. REBETOL [Suspect]
     Route: 048
     Dates: start: 20081215, end: 20090504
  4. ELTROMBOPAG [Suspect]
     Dosage: 25MG PER DAY
     Route: 048
     Dates: start: 20081201, end: 20081214
  5. SPIRONOL [Concomitant]
     Dosage: 75MG PER DAY
     Route: 048
     Dates: start: 20090406
  6. TORASEMIDUM [Concomitant]
     Dosage: 5MG PER DAY
     Route: 048
     Dates: start: 20090323
  7. CALCIUM [Concomitant]
     Dosage: 177MG THREE TIMES PER DAY
     Route: 048
     Dates: start: 20090223

REACTIONS (6)
  - ASCITES [None]
  - ASTHENIA [None]
  - HEPATIC FAILURE [None]
  - HEPATIC NEOPLASM MALIGNANT [None]
  - JAUNDICE [None]
  - OEDEMA PERIPHERAL [None]
